FAERS Safety Report 10185125 (Version 1)
Quarter: 2014Q2

REPORT INFORMATION
  Report Type: Spontaneous
  Country: US (occurrence: US)
  Receive Date: 20140521
  Receipt Date: 20140521
  Transmission Date: 20141212
  Serious: Yes (Hospitalization, Other)
  Sender: FDA-Public Use
  Company Number: US-AMGEN INC.-USASP2014037135

PATIENT
  Age: 43 Year
  Sex: Male

DRUGS (2)
  1. ENBREL [Suspect]
     Indication: PSORIATIC ARTHROPATHY
     Dosage: 50 MG, 2 TIMES/WK
     Route: 065
     Dates: start: 200404
  2. ENBREL [Suspect]
     Indication: PSORIASIS

REACTIONS (14)
  - Obesity surgery [Recovered/Resolved]
  - Peripheral swelling [Recovered/Resolved]
  - Gastric bypass [Recovered/Resolved]
  - Vein disorder [Recovered/Resolved]
  - Diabetes mellitus [Recovered/Resolved]
  - Skin haemorrhage [Not Recovered/Not Resolved]
  - Skin disorder [Not Recovered/Not Resolved]
  - Pruritus [Not Recovered/Not Resolved]
  - Skin exfoliation [Not Recovered/Not Resolved]
  - Pain [Recovered/Resolved]
  - Peripheral venous disease [Not Recovered/Not Resolved]
  - Skin discolouration [Not Recovered/Not Resolved]
  - Condition aggravated [Unknown]
  - Psoriasis [Unknown]
